FAERS Safety Report 9604344 (Version 1)
Quarter: 2013Q4

REPORT INFORMATION
  Report Type: Spontaneous
  Country: BR (occurrence: BR)
  Receive Date: 20131008
  Receipt Date: 20131008
  Transmission Date: 20140711
  Serious: Yes (Other)
  Sender: FDA-Public Use
  Company Number: BR-JNJFOC-20131000716

PATIENT
  Age: 43 Year
  Sex: Female
  Weight: 55 kg

DRUGS (4)
  1. REMICADE [Suspect]
     Indication: CROHN^S DISEASE
     Route: 042
     Dates: start: 201307
  2. REMICADE [Suspect]
     Indication: CROHN^S DISEASE
     Route: 042
     Dates: start: 2009
  3. CLONAZEPAM [Concomitant]
     Indication: EMOTIONAL DISORDER
     Route: 065
     Dates: start: 2010
  4. SERTRALINE [Concomitant]
     Indication: EMOTIONAL DISORDER
     Route: 065
     Dates: start: 2010

REACTIONS (6)
  - Cholelithiasis [Recovered/Resolved]
  - Blood pressure increased [Recovered/Resolved]
  - Arrhythmia [Recovered/Resolved]
  - Dyspnoea [Recovered/Resolved]
  - Pallor [Recovered/Resolved]
  - Oral mucosal discolouration [Recovered/Resolved]
